FAERS Safety Report 5827749-8 (Version None)
Quarter: 2008Q3

REPORT INFORMATION
  Report Type: 
  Country: None (occurrence: None)
  Receive Date: 20080728
  Receipt Date: 20080725
  Transmission Date: 20090109
  Serious: Yes (Other)
  Sender: FDA-Public Use
  Company Number: 100#03#2008-03717

PATIENT
  Age: 56 Year
  Sex: Female

DRUGS (7)
  1. TRAMADOL HCL [Suspect]
     Indication: DRUG USE FOR UNKNOWN INDICATION
     Dates: start: 20080706, end: 20080708
  2. ACETYLSALICYLIC ACID SRT [Concomitant]
  3. BISOPROLOL AND HYDROCHLOROTHIAZIDE (BISOPROLOL, HYDROCHLOROTHIAZIDE) [Concomitant]
  4. ENOXAPARIN SODIUM [Concomitant]
  5. ONDANSETERON (ONDANSETERON) [Concomitant]
  6. ACETAMINOPHEN [Concomitant]
  7. SIMVASTATIN [Concomitant]

REACTIONS (3)
  - AGGRESSION [None]
  - HALLUCINATION [None]
  - PARANOIA [None]
